FAERS Safety Report 23045764 (Version 1)
Quarter: 2023Q4

REPORT INFORMATION
  Report Type: Spontaneous
  Country: CA (occurrence: CA)
  Receive Date: 20231009
  Receipt Date: 20231009
  Transmission Date: 20240110
  Serious: Yes (Disabling, Other)
  Sender: FDA-Public Use
  Company Number: CA-GE HEALTHCARE-2023CSU008837

PATIENT
  Age: 56 Year
  Sex: Female
  Weight: 80 kg

DRUGS (7)
  1. VISIPAQUE [Suspect]
     Active Substance: IODIXANOL
     Indication: Diagnostic procedure
     Dosage: UNK UNK, SINGLE
     Route: 013
     Dates: start: 20230718, end: 20230718
  2. VISIPAQUE [Suspect]
     Active Substance: IODIXANOL
     Indication: Intracranial aneurysm
  3. VISIPAQUE [Suspect]
     Active Substance: IODIXANOL
     Indication: Cerebral endovascular aneurysm repair
  4. AMLODIPINE [Concomitant]
     Active Substance: AMLODIPINE BESYLATE
     Dosage: UNK
  5. BETAHISTINE [Concomitant]
     Active Substance: BETAHISTINE
     Dosage: UNK
  6. PERINDOPRIL [Concomitant]
     Active Substance: PERINDOPRIL
     Dosage: UNK
  7. ASPIRIN [Concomitant]
     Active Substance: ASPIRIN
     Dosage: UNK

REACTIONS (2)
  - Muscular weakness [Recovering/Resolving]
  - Speech disorder [Recovered/Resolved]
